FAERS Safety Report 25066599 (Version 1)
Quarter: 2025Q1

REPORT INFORMATION
  Report Type: Spontaneous
  Country: US (occurrence: US)
  Receive Date: 20250312
  Receipt Date: 20250312
  Transmission Date: 20250409
  Serious: No
  Sender: RANBAXY
  Company Number: US-SUN PHARMACEUTICAL INDUSTRIES LTD-2024R1-472560

PATIENT
  Sex: Female

DRUGS (2)
  1. ZOLPIDEM [Suspect]
     Active Substance: ZOLPIDEM TARTRATE
     Indication: Insomnia
     Dosage: 12.5 MILLIGRAM, DAILY, AT NIGHT
     Route: 065
  2. SLEEP AID (DIPHENHYDRAMINE HYDROCHLORIDE) [Concomitant]
     Active Substance: DIPHENHYDRAMINE HYDROCHLORIDE
     Indication: Insomnia
     Route: 065

REACTIONS (2)
  - Drug ineffective [Unknown]
  - Counterfeit product administered [Unknown]
